FAERS Safety Report 5033401-1 (Version None)
Quarter: 2006Q2

REPORT INFORMATION
  Report Type: 
  Country: None (occurrence: None)
  Receive Date: 20060623
  Receipt Date: 20060515
  Transmission Date: 20061013
  Serious: Yes (Hospitalization)
  Sender: FDA-Public Use
  Company Number: AU-AVENTIS-200615228GDDC

PATIENT
  Age: 67 Year
  Sex: Male

DRUGS (4)
  1. DOCETAXEL [Suspect]
     Indication: GASTROOESOPHAGEAL CANCER
     Route: 042
     Dates: start: 20060509, end: 20060509
  2. CISPLATIN [Suspect]
     Indication: GASTROOESOPHAGEAL CANCER
  3. FLUOROURACIL [Suspect]
     Indication: GASTROOESOPHAGEAL CANCER
     Route: 042
     Dates: end: 20060513
  4. LORAZEPAM [Concomitant]
     Route: 048
     Dates: start: 20060401

REACTIONS (8)
  - ANAEMIA [None]
  - ENDOCARDITIS [None]
  - GLOMERULONEPHRITIS [None]
  - HYPOTENSION [None]
  - NAUSEA [None]
  - RENAL IMPAIRMENT [None]
  - SEPSIS [None]
  - VOMITING [None]
